FAERS Safety Report 8305780-0 (Version None)
Quarter: 2012Q2

REPORT INFORMATION
  Report Type: 
  Country: None (occurrence: None)
  Receive Date: 20120423
  Receipt Date: 20120418
  Transmission Date: 20120825
  Serious: No
  Sender: FDA-Public Use
  Company Number: US-PFIZER INC-2012096798

PATIENT
  Sex: Male
  Weight: 104 kg

DRUGS (3)
  1. ATORVASTATIN CALCIUM [Suspect]
     Indication: BLOOD TRIGLYCERIDES INCREASED
  2. METOPROLOL [Concomitant]
     Indication: BLOOD PRESSURE ABNORMAL
     Dosage: 25 MG, DAILY
  3. ATORVASTATIN CALCIUM [Suspect]
     Indication: OVERWEIGHT
     Dosage: 20 MG, DAILY
     Route: 048
     Dates: start: 20120414, end: 20120415

REACTIONS (3)
  - MYALGIA [None]
  - MIGRAINE [None]
  - HEADACHE [None]
